FAERS Safety Report 7361619-1 (Version None)
Quarter: 2011Q1

REPORT INFORMATION
  Report Type: 
  Country: None (occurrence: None)
  Receive Date: 20110318
  Receipt Date: 20110310
  Transmission Date: 20110831
  Serious: Yes (Other)
  Sender: FDA-Public Use
  Company Number: US-JNJFOC-20061004244

PATIENT
  Sex: Female
  Weight: 102.06 kg

DRUGS (6)
  1. RISPERDAL [Suspect]
     Indication: ANXIETY
  2. TOPROL-XL [Concomitant]
     Indication: ILL-DEFINED DISORDER
     Dosage: ONE HALF TABLET DAILY
     Route: 065
  3. RISPERDAL [Suspect]
     Indication: SCHIZOPHRENIA
  4. TRILEPTAL [Concomitant]
     Indication: CONVULSION
  5. RISPERDAL [Suspect]
     Indication: DEPRESSION
  6. ZOLOFT [Concomitant]
     Indication: ILL-DEFINED DISORDER
     Route: 065

REACTIONS (1)
  - DIABETES MELLITUS [None]
